FAERS Safety Report 9189565 (Version 1)
Quarter: 2013Q1

REPORT INFORMATION
  Report Type: Spontaneous
  Country: US (occurrence: None)
  Receive Date: 20130322
  Receipt Date: 20130322
  Transmission Date: 20140127
  Serious: Yes (Hospitalization)
  Sender: FDA-Public Use
  Company Number: None

PATIENT
  Sex: Male
  Weight: 91.4 kg

DRUGS (1)
  1. PACLITAXEL (TAXOL) [Suspect]
     Dates: end: 20130222

REACTIONS (4)
  - Syncope [None]
  - Constipation [None]
  - Dizziness [None]
  - Loss of consciousness [None]
